FAERS Safety Report 17761459 (Version 1)
Quarter: 2020Q2

REPORT INFORMATION
  Report Type: Spontaneous
  Country: AR (occurrence: AR)
  Receive Date: 20200508
  Receipt Date: 20200508
  Transmission Date: 20200714
  Serious: Yes (Hospitalization)
  Sender: FDA-Public Use
  Company Number: PHHY2019AR113268

PATIENT
  Sex: Female

DRUGS (4)
  1. TEGRETOL [Suspect]
     Active Substance: CARBAMAZEPINE
     Dosage: (200MG) 3 DF, QD
     Route: 048
  2. TEGRETOL [Suspect]
     Active Substance: CARBAMAZEPINE
     Dosage: (200MG) 1.5 DF, QD
     Route: 048
  3. TEGRETOL [Suspect]
     Active Substance: CARBAMAZEPINE
     Indication: TRIGEMINAL NEURALGIA
     Dosage: (400 MG) 4 DF, QD
     Route: 048
  4. TEGRETOL [Suspect]
     Active Substance: CARBAMAZEPINE
     Dosage: (200MG) 2 DF, QD
     Route: 048

REACTIONS (12)
  - Blood pressure decreased [Unknown]
  - Odynophagia [Not Recovered/Not Resolved]
  - Discomfort [Recovered/Resolved]
  - Pain in jaw [Not Recovered/Not Resolved]
  - Vomiting [Unknown]
  - Blood sodium decreased [Recovered/Resolved]
  - Off label use [Unknown]
  - General physical health deterioration [Unknown]
  - Urinary tract infection [Recovered/Resolved]
  - Dizziness [Recovered/Resolved]
  - Oral pain [Not Recovered/Not Resolved]
  - Drug ineffective [Unknown]
